FAERS Safety Report 8983914 (Version 1)
Quarter: 2012Q4

REPORT INFORMATION
  Report Type: Spontaneous
  Country: US (occurrence: None)
  Receive Date: 20121218
  Receipt Date: 20121218
  Transmission Date: 20130627
  Serious: Yes (Hospitalization, Disabling)
  Sender: FDA-Public Use
  Company Number: None

PATIENT
  Age: 40 Year
  Sex: Male
  Weight: 70.76 kg

DRUGS (1)
  1. KEPPRA [Suspect]
     Route: 048
     Dates: start: 20111002, end: 20121217

REACTIONS (16)
  - Aggression [None]
  - Anger [None]
  - Irritability [None]
  - Depression [None]
  - Suicidal behaviour [None]
  - Refusal of treatment by patient [None]
  - Hallucination [None]
  - Muscular weakness [None]
  - Chills [None]
  - Movement disorder [None]
  - Pain [None]
  - Dysarthria [None]
  - Insomnia [None]
  - Nightmare [None]
  - Somnolence [None]
  - Skin disorder [None]
